FAERS Safety Report 5476197-1 (Version None)
Quarter: 2007Q4

REPORT INFORMATION
  Report Type: 
  Country: None (occurrence: None)
  Receive Date: 20071003
  Receipt Date: 20071002
  Transmission Date: 20080405
  Serious: Yes (Life-Threatening)
  Sender: FDA-Public Use
  Company Number: GB-WYE-G00409407

PATIENT
  Age: 59 Year
  Sex: Male

DRUGS (3)
  1. ANADIN IBUPROFEN [Suspect]
     Indication: PAIN
     Route: 048
     Dates: start: 20070915, end: 20070918
  2. PARACETAMOL [Concomitant]
     Indication: PAIN
     Dosage: 1G, FREQUENCY NOT STATED
     Route: 048
     Dates: start: 20070915
  3. OLANZAPINE [Concomitant]
     Indication: PSYCHOTIC DISORDER
     Route: 048
     Dates: start: 20070807

REACTIONS (1)
  - CARDIAC FAILURE [None]
